FAERS Safety Report 4475232-7 (Version None)
Quarter: 2004Q3

REPORT INFORMATION
  Report Type: 
  Country: None (occurrence: None)
  Receive Date: 20040923
  Receipt Date: 20040625
  Transmission Date: 20050211
  Serious: No
  Sender: FDA-Public Use
  Company Number: USA040671051

PATIENT
  Age: 79 Year
  Sex: Female
  Weight: 46 kg

DRUGS (6)
  1. FORTEO [Suspect]
     Indication: OSTEOPOROSIS
     Dosage: 20 UG/1 DAY
     Dates: start: 20040330
  2. NORVASC [Concomitant]
  3. TRIAMTERENE [Concomitant]
  4. LIPITOR [Concomitant]
  5. CALCIUM WITH VITAMIN D [Concomitant]
  6. VITAMIN E [Concomitant]

REACTIONS (1)
  - INJECTION SITE HAEMORRHAGE [None]
